FAERS Safety Report 21206264 (Version 2)
Quarter: 2023Q1

REPORT INFORMATION
  Report Type: Other
  Country: AU (occurrence: None)
  Receive Date: 20220812
  Receipt Date: 20230210
  Transmission Date: 20230418
  Serious: No
  Sender: FDA-Public Use
  Company Number: AU-ROCHE-3159559

PATIENT
  Sex: Female

DRUGS (2)
  1. OCREVUS [Suspect]
     Active Substance: OCRELIZUMAB
     Indication: Multiple sclerosis
     Route: 042
     Dates: start: 20220810, end: 20220810
  2. NILSTAT [Concomitant]
     Active Substance: NYSTATIN

REACTIONS (2)
  - COVID-19 [Recovering/Resolving]
  - COVID-19 [Recovered/Resolved with Sequelae]
